FAERS Safety Report 4955702-5 (Version None)
Quarter: 2006Q1

REPORT INFORMATION
  Report Type: 
  Country: None (occurrence: None)
  Receive Date: 20060328
  Receipt Date: 20060320
  Transmission Date: 20060701
  Serious: Yes (Other)
  Sender: FDA-Public Use
  Company Number: PHBS2006JP04301

PATIENT
  Age: 22 Year
  Sex: Female

DRUGS (1)
  1. VOLTAREN [Suspect]
     Dates: start: 20041201, end: 20041201

REACTIONS (1)
  - RHABDOMYOLYSIS [None]
